FAERS Safety Report 5232613-1 (Version None)
Quarter: 2007Q1

REPORT INFORMATION
  Report Type: 
  Country: None (occurrence: None)
  Receive Date: 20070205
  Receipt Date: 20070205
  Transmission Date: 20070707
  Serious: Yes (Hospitalization)
  Sender: FDA-Public Use
  Company Number: None

PATIENT
  Age: 79 Year
  Sex: Male
  Weight: 93.8946 kg

DRUGS (11)
  1. GABAPENTIN [Suspect]
     Indication: BACK PAIN
     Dosage: 300 MG TID PO
     Route: 048
     Dates: start: 20060915, end: 20061003
  2. OXYCODONE HCL [Suspect]
     Indication: PAIN
     Dosage: 5 MG Q4H PRN PO
     Route: 048
     Dates: start: 20060524, end: 20061003
  3. ASPIRIN [Concomitant]
  4. GABAPENTIN [Concomitant]
  5. ATENOLOL [Concomitant]
  6. CITALOPRAM HYDROBROMIDE [Concomitant]
  7. DOCUSATE [Concomitant]
  8. DONEPEZIL HCL [Concomitant]
  9. FELODIPINE [Concomitant]
  10. FUROSEMIDE [Concomitant]
  11. SPIRONOLACTONE [Concomitant]

REACTIONS (14)
  - ABDOMINAL PAIN UPPER [None]
  - CONFUSIONAL STATE [None]
  - DEHYDRATION [None]
  - DYSPNOEA [None]
  - FALL [None]
  - HALLUCINATION [None]
  - HALLUCINATION, VISUAL [None]
  - MENTAL STATUS CHANGES [None]
  - ORAL INTAKE REDUCED [None]
  - OXYGEN SATURATION DECREASED [None]
  - PRODUCTIVE COUGH [None]
  - RENAL FAILURE ACUTE [None]
  - THIRST [None]
  - URINARY TRACT INFECTION [None]
